FAERS Safety Report 7546625-6 (Version None)
Quarter: 2011Q2

REPORT INFORMATION
  Report Type: 
  Country: None (occurrence: None)
  Receive Date: 20110614
  Receipt Date: 20110531
  Transmission Date: 20111010
  Serious: No
  Sender: FDA-Public Use
  Company Number: US-B.I. PHARMACEUTICALS,INC./RIDGEFIELD-2011-BP-14347BP

PATIENT
  Sex: Female

DRUGS (5)
  1. SPIRIVA [Suspect]
     Indication: CHRONIC OBSTRUCTIVE PULMONARY DISEASE
     Dosage: 18 MCG
     Route: 055
     Dates: start: 20110301, end: 20110401
  2. LISINOPRIL [Concomitant]
     Indication: HYPERTENSION
     Dates: start: 20090101
  3. PROPRANOLOL HCTZ [Concomitant]
     Indication: HYPERTENSION
     Dates: start: 20090101
  4. METOPROLOL [Concomitant]
     Indication: HYPERTENSION
     Dates: start: 20110501
  5. ADVAIR DISKUS 100/50 [Concomitant]
     Indication: CHRONIC OBSTRUCTIVE PULMONARY DISEASE
     Dates: start: 20110401

REACTIONS (2)
  - THROAT TIGHTNESS [None]
  - SPUTUM INCREASED [None]
